FAERS Safety Report 18292044 (Version 1)
Quarter: 2020Q3

REPORT INFORMATION
  Report Type: Other
  Country: US (occurrence: US)
  Receive Date: 20200922
  Receipt Date: 20200922
  Transmission Date: 20201103
  Serious: Yes (Other)
  Sender: FDA-Public Use
  Company Number: US-ROCHE-2676019

PATIENT
  Age: 51 Year
  Sex: Female
  Weight: 84.44 kg

DRUGS (2)
  1. OXYBUTYNIN. [Concomitant]
     Active Substance: OXYBUTYNIN CHLORIDE
     Indication: NEUROGENIC BLADDER
     Route: 048
     Dates: start: 2018
  2. OCREVUS [Suspect]
     Active Substance: OCRELIZUMAB
     Indication: SECONDARY PROGRESSIVE MULTIPLE SCLEROSIS
     Dosage: ONGOING : YES
     Route: 042
     Dates: start: 2017

REACTIONS (7)
  - Neurogenic bladder [Not Recovered/Not Resolved]
  - Pain [Not Recovered/Not Resolved]
  - Balance disorder [Not Recovered/Not Resolved]
  - Urinary tract infection [Recovered/Resolved]
  - Weight increased [Not Recovered/Not Resolved]
  - Asthenia [Not Recovered/Not Resolved]
  - Multiple sclerosis relapse [Not Recovered/Not Resolved]

NARRATIVE: CASE EVENT DATE: 2018
